FAERS Safety Report 19996088 (Version 1)
Quarter: 2021Q4

REPORT INFORMATION
  Report Type: Spontaneous
  Country: ES (occurrence: ES)
  Receive Date: 20211026
  Receipt Date: 20211026
  Transmission Date: 20220303
  Serious: Yes (Life-Threatening, Hospitalization, Other)
  Sender: FDA-Public Use
  Company Number: None

PATIENT
  Age: 26 Year
  Sex: Female

DRUGS (2)
  1. ACETAMINOPHEN [Suspect]
     Active Substance: ACETAMINOPHEN
     Indication: Product used for unknown indication
     Dosage: 40 MILLIGRAM, TOTAL (40.000 MG DE PARACETAMOL)
     Route: 048
     Dates: start: 20210419, end: 20210419
  2. VALERIAN [Suspect]
     Active Substance: VALERIAN
     Indication: Product used for unknown indication
     Dosage: UNK
     Route: 048
     Dates: start: 20210419, end: 20210419

REACTIONS (3)
  - Acute hepatic failure [Recovering/Resolving]
  - Intentional overdose [Recovering/Resolving]
  - Suicide attempt [Unknown]

NARRATIVE: CASE EVENT DATE: 20210420
